FAERS Safety Report 24459840 (Version 1)
Quarter: 2024Q4

REPORT INFORMATION
  Report Type: Spontaneous
  Country: GB (occurrence: GB)
  Receive Date: 20241018
  Receipt Date: 20241018
  Transmission Date: 20250114
  Serious: No
  Sender: ROCHE
  Company Number: GB-ROCHE-3542148

PATIENT
  Age: 69 Year
  Sex: Female

DRUGS (5)
  1. RITUXIMAB [Suspect]
     Active Substance: RITUXIMAB
     Indication: Pseudolymphoma
     Dosage: EVERY 4 WEEKS FOR 3 CONSECUTIVE MONTHS
     Route: 026
  2. RITUXIMAB [Suspect]
     Active Substance: RITUXIMAB
     Route: 026
  3. TRIAMCINOLONE [Concomitant]
     Active Substance: TRIAMCINOLONE
     Indication: Pseudolymphoma
     Route: 026
  4. LYMECYCLINE [Concomitant]
     Active Substance: LYMECYCLINE
     Indication: Pseudolymphoma
  5. TACROLIMUS [Concomitant]
     Active Substance: TACROLIMUS
     Indication: Pseudolymphoma

REACTIONS (7)
  - Pain [Recovered/Resolved]
  - Fatigue [Recovered/Resolved]
  - Feeling cold [Recovered/Resolved]
  - Decreased appetite [Recovered/Resolved]
  - Dysgeusia [Recovered/Resolved]
  - Headache [Recovered/Resolved]
  - Tinnitus [Recovered/Resolved]
